FAERS Safety Report 18797975 (Version 1)
Quarter: 2021Q1

REPORT INFORMATION
  Report Type: Report from Study
  Country: HU (occurrence: HU)
  Receive Date: 20210128
  Receipt Date: 20210128
  Transmission Date: 20210419
  Serious: Yes (Other)
  Sender: FDA-Public Use
  Company Number: NVSC2021HU013773

PATIENT
  Age: 67 Year
  Sex: Male
  Weight: 100 kg

DRUGS (5)
  1. PROGRAF [Concomitant]
     Active Substance: TACROLIMUS
     Indication: HEART TRANSPLANT
     Dosage: 1 MG, BID (2X1MG)
     Route: 048
     Dates: start: 20140208
  2. BISOBLOCK [Concomitant]
     Active Substance: BISOPROLOL FUMARATE
     Indication: HYPERTENSION
     Dosage: 5 MG, BID (2X5 MG) (4 YEARS)
     Route: 048
     Dates: start: 2017
  3. AMLODIPIN SANDOZ (AMLODIPINE BESILATE) [Suspect]
     Active Substance: AMLODIPINE BESYLATE
     Indication: HYPERTENSION
     Dosage: 5 MG, BID (2X5 MG) (5 YEARS)
     Route: 048
     Dates: start: 2016
  4. CERTICAN [Suspect]
     Active Substance: EVEROLIMUS
     Indication: HEART TRANSPLANT
     Dosage: 1 MG  IN THE MORNING, 0.75 MG IN THE EVENING (4 YEARS)
     Route: 048
     Dates: start: 2017
  5. VALSARTAN SANDOZ [Suspect]
     Active Substance: VALSARTAN
     Indication: HYPERTENSION
     Dosage: 160 MG, BID (2X160MG) (6 YEARS)
     Route: 048
     Dates: start: 2015

REACTIONS (4)
  - Dysuria [Recovered/Resolved]
  - Vasculitis [Unknown]
  - Urinary tract infection [Recovered/Resolved]
  - Pollakiuria [Recovered/Resolved]

NARRATIVE: CASE EVENT DATE: 20201216
